FAERS Safety Report 9646168 (Version 1)
Quarter: 2013Q4

REPORT INFORMATION
  Report Type: Spontaneous
  Country: GB (occurrence: GB)
  Receive Date: 20131025
  Receipt Date: 20131025
  Transmission Date: 20140711
  Serious: Yes (Hospitalization)
  Sender: FDA-Public Use
  Company Number: GB-PFIZER INC-2013306649

PATIENT
  Age: 82 Year
  Sex: Male
  Weight: 67 kg

DRUGS (19)
  1. RAMIPRIL [Suspect]
     Indication: HYPERTENSION
     Dosage: 5 MG, 1X/DAY
     Route: 048
     Dates: end: 20130927
  2. RAMIPRIL [Suspect]
     Indication: CARDIAC FAILURE CONGESTIVE
  3. CLENIL MODULITE [Concomitant]
     Dosage: 400 UG, 2X/DAY
     Route: 055
  4. BISOPROLOL [Concomitant]
     Dosage: 7.5 MG, 1X/DAY
     Route: 048
  5. BUMETANIDE [Concomitant]
     Dosage: 1 MG, 2X/DAY
     Route: 048
  6. CODEINE PHOSPHATE [Concomitant]
     Indication: PAIN
     Dosage: 30 MG, 4X/DAY
     Route: 048
  7. DONEPEZIL [Concomitant]
     Dosage: 10 MG, 1X/DAY
     Route: 048
  8. FERROUS FUMARATE [Concomitant]
     Dosage: 140 MG, 3X/DAY
     Route: 048
  9. FLUOXETINE [Concomitant]
     Dosage: 20 MG, 1X/DAY
     Route: 048
  10. LANSOPRAZOLE [Concomitant]
     Dosage: 30 MG, 1X/DAY
     Route: 048
  11. PARACETAMOL [Concomitant]
     Indication: PAIN
     Dosage: 1 G, 4X/DAY
     Route: 048
  12. SALBUTAMOL [Concomitant]
     Indication: WHEEZING
     Dosage: 200 UG, 4X/DAY
     Route: 055
  13. SIMVASTATIN [Concomitant]
     Dosage: 40 MG, 1X/DAY
     Route: 048
  14. SPIRONOLACTONE [Concomitant]
     Dosage: 25 MG, 1X/DAY
     Route: 048
  15. WARFARIN [Concomitant]
     Indication: ATRIAL FIBRILLATION
     Dosage: 1 IN 1 D
     Route: 048
  16. PEPTAC [Concomitant]
     Indication: DYSPEPSIA
     Dosage: UNK
  17. ACIDEX [Concomitant]
     Indication: DYSPEPSIA
     Dosage: 10 ML, 4X/DAY
     Route: 048
  18. RAMIPRIL [Concomitant]
     Dosage: 5 MG, 1X/DAY
  19. AMOXICILLIN [Concomitant]
     Indication: URINARY TRACT INFECTION
     Dosage: 500 MG, 3X/DAY
     Route: 048
     Dates: start: 20130808

REACTIONS (2)
  - Renal failure acute [Recovered/Resolved]
  - Dehydration [Recovered/Resolved]
